FAERS Safety Report 19393286 (Version 1)
Quarter: 2021Q2

REPORT INFORMATION
  Report Type: Spontaneous
  Country: US (occurrence: US)
  Receive Date: 20210608
  Receipt Date: 20210608
  Transmission Date: 20210717
  Serious: Yes (Other)
  Sender: FDA-Public Use
  Company Number: None

PATIENT
  Age: 45 Year
  Sex: Female
  Weight: 60.75 kg

DRUGS (3)
  1. DEXTROAMPHET SACCHARAT, AMPHET ASPARTATE, DEXTROAMPHET SULFATE AND AMPHET SULFAT [Suspect]
     Active Substance: AMPHETAMINE ASPARTATE\AMPHETAMINE SULFATE\DEXTROAMPHETAMINE SACCHARATE\DEXTROAMPHETAMINE SULFATE
     Indication: NARCOLEPSY
     Dosage: ?          QUANTITY:1 TABLET(S);?
     Route: 048
     Dates: start: 20210527, end: 20210602
  2. PRO AIR INHALER [Concomitant]
  3. VITAMIN C [Concomitant]
     Active Substance: ASCORBIC ACID

REACTIONS (11)
  - Wheezing [None]
  - Initial insomnia [None]
  - Palpitations [None]
  - Vision blurred [None]
  - Drug ineffective [None]
  - Therapeutic response changed [None]
  - Product substitution issue [None]
  - Migraine [None]
  - Headache [None]
  - Sleep disorder [None]
  - Disturbance in attention [None]

NARRATIVE: CASE EVENT DATE: 20210528
